FAERS Safety Report 14598577 (Version 3)
Quarter: 2019Q4

REPORT INFORMATION
  Report Type: Spontaneous
  Country: US (occurrence: US)
  Receive Date: 20180305
  Receipt Date: 20191118
  Transmission Date: 20200122
  Serious: Yes (Hospitalization, Disabling, Other)
  Sender: FDA-Public Use
  Company Number: US-JNJFOC-20180236407

PATIENT
  Age: 35 Year
  Sex: Male
  Weight: 86.26 kg

DRUGS (1)
  1. INVOKANA [Suspect]
     Active Substance: CANAGLIFLOZIN
     Indication: DIABETES MELLITUS
     Route: 048
     Dates: start: 201403, end: 201603

REACTIONS (3)
  - Renal failure [Unknown]
  - Leg amputation [Unknown]
  - Osteomyelitis chronic [Unknown]

NARRATIVE: CASE EVENT DATE: 2017
